FAERS Safety Report 16839508 (Version 1)
Quarter: 2019Q4

REPORT INFORMATION
  Report Type: Spontaneous
  Country: US (occurrence: US)
  Receive Date: 20190922
  Receipt Date: 20190922
  Transmission Date: 20200122
  Serious: Yes (Disabling, Other)
  Sender: FDA-Public Use
  Company Number: None

PATIENT
  Age: 62 Year
  Sex: Female
  Weight: 81 kg

DRUGS (1)
  1. FOSAMAX [Suspect]
     Active Substance: ALENDRONATE SODIUM
     Indication: OSTEOPOROSIS
     Dosage: ?          QUANTITY:1 TABLET(S);?
     Route: 048
     Dates: start: 20190910, end: 20190910

REACTIONS (8)
  - Walking aid user [None]
  - Mobility decreased [None]
  - Inadequate analgesia [None]
  - Musculoskeletal chest pain [None]
  - Drug hypersensitivity [None]
  - Gait disturbance [None]
  - Impaired work ability [None]
  - Arthralgia [None]

NARRATIVE: CASE EVENT DATE: 20190910
